FAERS Safety Report 12455245 (Version 1)
Quarter: 2016Q2

REPORT INFORMATION
  Report Type: Spontaneous
  Country: US (occurrence: None)
  Receive Date: 20160609
  Receipt Date: 20160609
  Transmission Date: 20160815
  Serious: Yes (Life-Threatening, Hospitalization)
  Sender: FDA-Public Use
  Company Number: None

PATIENT
  Age: 0 Day
  Sex: Male
  Weight: 1.2 kg

DRUGS (4)
  1. STARTER TPN [Concomitant]
  2. ERYTHROMYCIN. [Concomitant]
     Active Substance: ERYTHROMYCIN
  3. PHYTONADIONE. [Concomitant]
     Active Substance: PHYTONADIONE
  4. INFASURF [Suspect]
     Active Substance: CALFACTANT
     Indication: NEONATAL RESPIRATORY DISTRESS SYNDROME
     Route: 007
     Dates: start: 20160531, end: 20160531

REACTIONS (4)
  - Oxygen saturation decreased [None]
  - Respiration abnormal [None]
  - Endotracheal intubation complication [None]
  - Heart rate decreased [None]

NARRATIVE: CASE EVENT DATE: 20160531
